FAERS Safety Report 7979737-3 (Version None)
Quarter: 2011Q4

REPORT INFORMATION
  Report Type: 
  Country: None (occurrence: None)
  Receive Date: 20111214
  Receipt Date: 20111130
  Transmission Date: 20120403
  Serious: Yes (Other)
  Sender: FDA-Public Use
  Company Number: BR-ROCHE-1018931

PATIENT

DRUGS (6)
  1. GEMCITABINE [Concomitant]
     Indication: BREAST CANCER
  2. TAXOL [Concomitant]
     Indication: BREAST CANCER
  3. HERCEPTIN [Suspect]
     Indication: BREAST CANCER
  4. XELODA [Suspect]
     Indication: BREAST CANCER
  5. NAVELBINE [Concomitant]
     Indication: BREAST CANCER
  6. TYKERB [Concomitant]
     Indication: BREAST CANCER

REACTIONS (4)
  - NO THERAPEUTIC RESPONSE [None]
  - DISEASE PROGRESSION [None]
  - DYSPNOEA [None]
  - INFLAMMATION [None]
